FAERS Safety Report 25681335 (Version 1)
Quarter: 2025Q3

REPORT INFORMATION
  Report Type: Spontaneous
  Country: US (occurrence: None)
  Receive Date: 20250813
  Receipt Date: 20250813
  Transmission Date: 20251021
  Serious: Yes (Other)
  Sender: FDA-CTU
  Company Number: None

PATIENT
  Age: 51 Year
  Sex: Female
  Weight: 50.4 kg

DRUGS (2)
  1. EXPAREL [Suspect]
     Active Substance: BUPIVACAINE
     Indication: Procedural pain
     Route: 058
     Dates: start: 20250801
  2. Vitamin D Calcium [Concomitant]

REACTIONS (6)
  - Asthenia [None]
  - Muscular weakness [None]
  - Hypoaesthesia [None]
  - Hypoaesthesia [None]
  - Gait disturbance [None]
  - Movement disorder [None]

NARRATIVE: CASE EVENT DATE: 20250804
